FAERS Safety Report 4336022-9 (Version None)
Quarter: 2004Q2

REPORT INFORMATION
  Report Type: 
  Country: None (occurrence: None)
  Receive Date: 20040406
  Receipt Date: 20040325
  Transmission Date: 20050107
  Serious: Yes (Other)
  Sender: FDA-Public Use
  Company Number: 2004201604GB

PATIENT
  Age: 19 Year
  Sex: Female
  Weight: 55 kg

DRUGS (2)
  1. DEPO-PROVERA [Suspect]
     Indication: CONTRACEPTION
     Dosage: FIRST INJECTION, INTRAMUSCULAR; LAST INJECTION, INTRAMUSCULAR
     Route: 030
     Dates: start: 19990101, end: 19990101
  2. DEPO-PROVERA [Suspect]
     Indication: CONTRACEPTION
     Dosage: FIRST INJECTION, INTRAMUSCULAR; LAST INJECTION, INTRAMUSCULAR
     Route: 030
     Dates: start: 20030101, end: 20030101

REACTIONS (2)
  - EPILEPSY [None]
  - MIGRAINE [None]
